FAERS Safety Report 10977758 (Version 1)
Quarter: 2015Q2

REPORT INFORMATION
  Report Type: Spontaneous
  Country: US (occurrence: None)
  Receive Date: 20150401
  Receipt Date: 20150401
  Transmission Date: 20150821
  Serious: Yes (Disabling)
  Sender: FDA-Public Use
  Company Number: None

PATIENT
  Age: 80 Year
  Sex: Male
  Weight: 105.24 kg

DRUGS (7)
  1. TAMSOLOSIN [Concomitant]
  2. ASPIRIN. [Concomitant]
     Active Substance: ASPIRIN
  3. CATRATE  CALCIUM 600 + VITAMIN  D3 [Concomitant]
  4. ASA [Concomitant]
     Active Substance: ASPIRIN
  5. MULTAQ [Suspect]
     Active Substance: DRONEDARONE
     Indication: ATRIAL FIBRILLATION
     Dosage: 2 TABLETS
     Route: 048
     Dates: start: 20150305, end: 20150314
  6. BRILINTA [Concomitant]
     Active Substance: TICAGRELOR
  7. CRESTOR [Concomitant]
     Active Substance: ROSUVASTATIN CALCIUM

REACTIONS (5)
  - Weight increased [None]
  - Oedema [None]
  - Peripheral swelling [None]
  - Skin disorder [None]
  - Blister [None]

NARRATIVE: CASE EVENT DATE: 20150314
